FAERS Safety Report 14461703 (Version 1)
Quarter: 2018Q1

REPORT INFORMATION
  Report Type: Spontaneous
  Country: JP (occurrence: JP)
  Receive Date: 20180130
  Receipt Date: 20180130
  Transmission Date: 20180509
  Serious: Yes (Death)
  Sender: FDA-Public Use
  Company Number: JP-PURDUE-GBR-2018-0052756

PATIENT
  Sex: Male

DRUGS (1)
  1. MS CONTIN [Suspect]
     Active Substance: MORPHINE SULFATE
     Indication: SMALL CELL CARCINOMA
     Dosage: UNK
     Route: 048
     Dates: start: 20171108, end: 20171215

REACTIONS (4)
  - Anal fissure [Recovered/Resolved]
  - Haemorrhoids [Unknown]
  - Small cell carcinoma [Fatal]
  - Constipation [Recovered/Resolved]

NARRATIVE: CASE EVENT DATE: 20171121
